FAERS Safety Report 20707184 (Version 1)
Quarter: 2022Q2

REPORT INFORMATION
  Report Type: Report from Study
  Country: US (occurrence: US)
  Receive Date: 20220413
  Receipt Date: 20220413
  Transmission Date: 20220721
  Serious: Yes (Other)
  Sender: FDA-Public Use
  Company Number: US-BRISTOL-MYERS SQUIBB COMPANY-2022-016992

PATIENT
  Age: 69 Year
  Sex: Male
  Weight: 86.2 kg

DRUGS (1)
  1. REVLIMID [Suspect]
     Active Substance: LENALIDOMIDE
     Indication: Plasma cell myeloma
     Dosage: DAILY 21 DAYS
     Route: 048
     Dates: start: 201708

REACTIONS (5)
  - Parkinson^s disease [Unknown]
  - Vitamin D decreased [Unknown]
  - Vitamin B12 decreased [Unknown]
  - Meningioma benign [Unknown]
  - Product dose omission issue [Unknown]
